FAERS Safety Report 10055585 (Version 3)
Quarter: 2014Q2

REPORT INFORMATION
  Report Type: Spontaneous
  Country: US (occurrence: US)
  Receive Date: 20140403
  Receipt Date: 20140519
  Transmission Date: 20141212
  Serious: No
  Sender: FDA-Public Use
  Company Number: US-SHIRE-US201400999

PATIENT
  Age: 49 Year
  Sex: Male
  Weight: 68.27 kg

DRUGS (1)
  1. LIALDA [Suspect]
     Indication: COLITIS ULCERATIVE
     Dosage: 4.8 G, 1X/DAY:QD (FOUR 1.2 G TABLETS IN MORNING)
     Route: 048
     Dates: start: 201402, end: 201402

REACTIONS (2)
  - Pain [Recovered/Resolved]
  - Colitis ulcerative [Recovered/Resolved]
